FAERS Safety Report 7753148-8 (Version None)
Quarter: 2011Q3

REPORT INFORMATION
  Report Type: 
  Country: None (occurrence: None)
  Receive Date: 20110915
  Receipt Date: 20110913
  Transmission Date: 20111222
  Serious: Yes (Other)
  Sender: FDA-Public Use
  Company Number: AU-PFIZER INC-2011193881

PATIENT
  Age: 53 Year
  Sex: Male
  Weight: 104 kg

DRUGS (5)
  1. MIRTAZAPINE [Concomitant]
     Indication: MAJOR DEPRESSION
     Dosage: 60 MG, 1X/DAY
     Route: 048
     Dates: start: 20030101
  2. PERINDOPRIL ERBUMINE [Concomitant]
     Indication: HYPERTENSION
     Dosage: 10 MG, 1X/DAY
     Route: 048
     Dates: start: 20000101
  3. ZIPRASIDONE HYDROCHLORIDE [Suspect]
     Indication: BIPOLAR II DISORDER
     Dosage: 60 MG, 2X/DAY
     Route: 048
  4. LITHIUM CARBONATE [Concomitant]
     Indication: BIPOLAR DISORDER
     Dosage: 450 MG, 2X/DAY
     Route: 048
     Dates: start: 20070101
  5. LEXAPRO [Concomitant]
     Indication: MAJOR DEPRESSION
     Dosage: 20 MG, 1X/DAY
     Route: 048
     Dates: start: 20020101

REACTIONS (3)
  - HYPERTONIA [None]
  - PARKINSONISM [None]
  - DYSKINESIA [None]
